FAERS Safety Report 17458845 (Version 1)
Quarter: 2020Q1

REPORT INFORMATION
  Report Type: Spontaneous
  Country: US (occurrence: US)
  Receive Date: 20200225
  Receipt Date: 20200225
  Transmission Date: 20200409
  Serious: No
  Sender: FDA-Public Use
  Company Number: US-IGSA-SR10008577

PATIENT
  Age: 62 Year
  Sex: Male
  Weight: 72 kg

DRUGS (13)
  1. PROLASTIN-C LIQUID [Suspect]
     Active Substance: .ALPHA.1-PROTEINASE INHIBITOR HUMAN
     Indication: ALPHA-1 ANTI-TRYPSIN DEFICIENCY
     Dosage: 4320 MG, Q.WK.
     Route: 042
     Dates: start: 20190608
  2. MULTIVITAMIN                       /00097801/ [Concomitant]
     Active Substance: VITAMINS
  3. SYMBICORT [Concomitant]
     Active Substance: BUDESONIDE\FORMOTEROL FUMARATE DIHYDRATE
  4. DIGOXIN. [Concomitant]
     Active Substance: DIGOXIN
  5. TRAMADOL HCL [Concomitant]
     Active Substance: TRAMADOL HYDROCHLORIDE
  6. SPIRIVA [Concomitant]
     Active Substance: TIOTROPIUM BROMIDE MONOHYDRATE
  7. LISINOPRIL. [Concomitant]
     Active Substance: LISINOPRIL
  8. CARDIZEM [Concomitant]
     Active Substance: DILTIAZEM HYDROCHLORIDE
  9. PROVENTIL HFA [Concomitant]
     Active Substance: ALBUTEROL SULFATE
  10. DOFETILIDE. [Concomitant]
     Active Substance: DOFETILIDE
  11. PENTASA [Concomitant]
     Active Substance: MESALAMINE
  12. XARELTO [Concomitant]
     Active Substance: RIVAROXABAN
  13. CYCLOBENZAPRINE HCL [Concomitant]
     Active Substance: CYCLOBENZAPRINE HYDROCHLORIDE

REACTIONS (2)
  - Bedridden [Recovered/Resolved]
  - Fatigue [Recovered/Resolved]

NARRATIVE: CASE EVENT DATE: 20190612
